FAERS Safety Report 21379024 (Version 1)
Quarter: 2022Q3

REPORT INFORMATION
  Report Type: Spontaneous
  Country: DE (occurrence: DE)
  Receive Date: 20220927
  Receipt Date: 20220927
  Transmission Date: 20221027
  Serious: Yes (Other)
  Sender: FDA-Public Use
  Company Number: DE-SAMSUNG BIOEPIS-SB-2021-17652

PATIENT
  Age: 33 Year
  Sex: Female

DRUGS (3)
  1. ETANERCEPT [Suspect]
     Active Substance: ETANERCEPT
     Indication: Axial spondyloarthritis
     Route: 065
     Dates: start: 20190415, end: 20210309
  2. ETANERCEPT [Suspect]
     Active Substance: ETANERCEPT
     Route: 065
     Dates: start: 20211206
  3. IBUPROFEN [Concomitant]
     Active Substance: IBUPROFEN
     Indication: Product used for unknown indication
     Dosage: FREQUENCY: 3 DAYS PER WEEK
     Route: 065
     Dates: start: 20210309

REACTIONS (2)
  - Maternal exposure during pregnancy [Recovered/Resolved]
  - Complication of pregnancy [Unknown]

NARRATIVE: CASE EVENT DATE: 20210127
